FAERS Safety Report 9555258 (Version 1)
Quarter: 2013Q3

REPORT INFORMATION
  Report Type: Spontaneous
  Country: US (occurrence: None)
  Receive Date: 20130726
  Receipt Date: 20130726
  Transmission Date: 20140515
  Serious: Yes (Hospitalization)
  Sender: FDA-Public Use
  Company Number: UTC-021170

PATIENT
  Age: 38 Year
  Sex: Male
  Weight: 63.18 kg

DRUGS (4)
  1. TYVASO (6 MICROGRAM, AEROSOL FOR INHALATION) (TREPROSTINIL SODIUM) [Suspect]
     Indication: COR PULMONALE CHRONIC
     Dosage: 18 TO 54 MCGS (4 IN 1 D), INHALATION?
     Route: 055
     Dates: start: 20111004
  2. TYVASO (6 MICROGRAM, AEROSOL FOR INHALATION) (TREPROSTINIL SODIUM) [Suspect]
     Indication: PULMONARY ARTERIAL HYPERTENSION
     Dosage: 18 TO 54 MCGS (4 IN 1 D), INHALATION?
     Route: 055
     Dates: start: 20111004
  3. LETAIRIS (AMBRISENTAN) (TABLETS) [Concomitant]
  4. COUMADIN (WARFARIN SODIUM) [Concomitant]

REACTIONS (2)
  - Epistaxis [None]
  - Face injury [None]
